FAERS Safety Report 16603144 (Version 3)
Quarter: 2019Q3

REPORT INFORMATION
  Report Type: Spontaneous
  Country: DE (occurrence: DE)
  Receive Date: 20190721
  Receipt Date: 20190831
  Transmission Date: 20191004
  Serious: Yes (Death, Other)
  Sender: FDA-Public Use
  Company Number: PHHY2019DE166454

PATIENT
  Age: 91 Year
  Sex: Male
  Weight: 62 kg

DRUGS (13)
  1. TEMGESIC [Concomitant]
     Active Substance: BUPRENORPHINE HYDROCHLORIDE
     Indication: RESTLESSNESS
     Dosage: 0.2 MG, UNK (1X1 TABLET UP TO 3X 1 TABLET PER DAY)
     Route: 065
  2. ENTRESTO [Suspect]
     Active Substance: SACUBITRIL\VALSARTAN
     Indication: LEFT VENTRICULAR FAILURE
     Dosage: 100 (49/51) MG, BID (1 IN THE MORNING, 1 IN THE EVENING)
     Route: 065
     Dates: start: 20190703
  3. ASPIRIN. [Concomitant]
     Active Substance: ASPIRIN
     Indication: CORONARY ARTERY DISEASE
     Dosage: 100 MG, QD (IN THE MORNING)
     Route: 065
  4. MELPERON AL [Concomitant]
     Indication: RESTLESSNESS
     Dosage: 25 MG, QD
     Route: 065
  5. NOVALGIN [Concomitant]
     Indication: PAIN
     Dosage: 500 MG, PRN (MAX DOSE: 3 X 2 TABLETS PER DAY)
     Route: 065
  6. TORASEMID AAA-PHARMA [Concomitant]
     Active Substance: TORSEMIDE
     Indication: OEDEMA
     Dosage: 10 MG, UNK (3 IN THE MORNING A AT NOON)
     Route: 065
  7. DIAZEPAM. [Concomitant]
     Active Substance: DIAZEPAM
     Indication: RESTLESSNESS
     Dosage: 10 MG/ML, UNK (4 DROPS AT RESTLESSNESS, MAX DOSE: 20 DROPS PER DAY IN 3 APPLICATIONS)
     Route: 065
  8. BISOPROLOL [Concomitant]
     Active Substance: BISOPROLOL
     Indication: CARDIAC FAILURE
     Dosage: 7.5 MG, UNK (0.7 IN THE MORNING 0.3 IN THE EVENING)
     Route: 065
  9. TEMGESIC [Concomitant]
     Active Substance: BUPRENORPHINE HYDROCHLORIDE
     Indication: ANXIETY
  10. PANTOPRA Q [Concomitant]
     Indication: GASTRIC DISORDER
     Dosage: 20 MG, QOD
     Route: 065
  11. ALLOPURINOL. [Concomitant]
     Active Substance: ALLOPURINOL
     Indication: HYPERURICAEMIA
     Dosage: 100 MG, QD (AT NOON)
     Route: 065
  12. ENTRESTO [Suspect]
     Active Substance: SACUBITRIL\VALSARTAN
     Dosage: 100 (49/51) MG, BID (1 IN THE MORNING, 1 IN THE EVENING)
     Route: 065
     Dates: start: 20190812
  13. ISMN AL [Concomitant]
     Indication: CORONARY ARTERY DISEASE
     Dosage: 20 MG, UNK (1 IN THE MORNING AND 1 IN THE EVENING)
     Route: 065

REACTIONS (2)
  - Cardiac failure [Fatal]
  - Blood blister [Recovering/Resolving]

NARRATIVE: CASE EVENT DATE: 20190714
